FAERS Safety Report 14761925 (Version 1)
Quarter: 2018Q2

REPORT INFORMATION
  Report Type: Spontaneous
  Country: GB (occurrence: GB)
  Receive Date: 20180416
  Receipt Date: 20180416
  Transmission Date: 20180711
  Serious: Yes (Other)
  Sender: FDA-Public Use
  Company Number: GB-TEVA-2018-GB-881697

PATIENT
  Age: 54 Year
  Sex: Male
  Weight: 100 kg

DRUGS (11)
  1. CARBIMAZOLE [Concomitant]
     Active Substance: CARBIMAZOLE
     Dosage: EVERY OTHER DAY
     Dates: start: 20170720, end: 20171207
  2. RASAGILINE. [Concomitant]
     Active Substance: RASAGILINE
     Dosage: 1 DOSAGE FORMS DAILY; IN THE MORNING
     Dates: start: 20171207
  3. CIALIS [Concomitant]
     Active Substance: TADALAFIL
     Dosage: AS DIRECTED
     Dates: start: 20170614
  4. PROPRANOLOL [Concomitant]
     Active Substance: PROPRANOLOL HYDROCHLORIDE
     Dosage: 1 DOSAGE FORMS DAILY; EACH MORNING
     Dates: start: 20170614
  5. AMIODARONE [Suspect]
     Active Substance: AMIODARONE
     Route: 065
     Dates: start: 20180206
  6. PRAMIPEXOLE. [Concomitant]
     Active Substance: PRAMIPEXOLE
     Dosage: 1 DOSAGE FORMS DAILY;
     Dates: start: 20170905
  7. STANEK [Concomitant]
     Dosage: 4 DOSAGE FORMS DAILY;
     Dates: start: 20170614
  8. RANITIDINE. [Concomitant]
     Active Substance: RANITIDINE
     Dosage: 2 DOSAGE FORMS DAILY; ONE TO BE TAKEN MORNING AND EVENING
     Dates: start: 20170614
  9. PERINDOPRIL TERT-BUTYLAMINE [Concomitant]
     Active Substance: PERINDOPRIL ERBUMINE
     Dosage: 1 DOSAGE FORMS DAILY; TAKE ONE AT 6PM
     Dates: start: 20170614
  10. AZATHIOPRINE. [Concomitant]
     Active Substance: AZATHIOPRINE
     Dosage: 1 DOSAGE FORMS DAILY; EACH MORNING
     Dates: start: 20170614
  11. SINEMET [Concomitant]
     Active Substance: CARBIDOPA\LEVODOPA
     Dosage: 1 DOSAGE FORMS DAILY; AT NIGHT - HALF
     Dates: start: 20170614

REACTIONS (1)
  - Thyroid disorder [Recovered/Resolved]

NARRATIVE: CASE EVENT DATE: 20180211
